FAERS Safety Report 11997432 (Version 1)
Quarter: 2016Q1

REPORT INFORMATION
  Report Type: Report from Study
  Country: KR (occurrence: KR)
  Receive Date: 20160203
  Receipt Date: 20160203
  Transmission Date: 20160526
  Serious: Yes (Hospitalization)
  Sender: FDA-Public Use
  Company Number: KR-AMGEN-KORCT2016012304

PATIENT
  Age: 56 Year
  Sex: Female
  Weight: 47.8 kg

DRUGS (11)
  1. NESP [Concomitant]
     Active Substance: DARBEPOETIN ALFA
     Dosage: 60 MUG, UNK
     Route: 042
     Dates: start: 20130705
  2. CINACALCET HCL [Suspect]
     Active Substance: CINACALCET HYDROCHLORIDE
     Indication: HYPERPARATHYROIDISM SECONDARY
     Dosage: 25 MG, QD
     Route: 048
     Dates: start: 20150403
  3. PLAVIX [Concomitant]
     Active Substance: CLOPIDOGREL BISULFATE
     Dosage: 75 MG, UNK
     Route: 048
     Dates: start: 19940713
  4. SYNTHROID [Concomitant]
     Active Substance: LEVOTHYROXINE SODIUM
     Dosage: 0.025 MG, UNK
     Route: 048
     Dates: start: 20090302
  5. ISOKET [Concomitant]
     Active Substance: ISOSORBIDE DINITRATE
     Dosage: 80 MG, UNK
     Route: 048
     Dates: start: 20150306
  6. ASPIRIN PROTECT [Concomitant]
     Active Substance: ASPIRIN
     Dosage: 100 MG, UNK
     Route: 048
     Dates: start: 19940713
  7. RENALMIN [Concomitant]
     Dosage: 60 MG, UNK
     Route: 048
     Dates: start: 19940713
  8. DIGOXIN. [Concomitant]
     Active Substance: DIGOXIN
     Dosage: 0.062 MG, UNK
     Route: 048
     Dates: start: 20141228
  9. NORVASC [Concomitant]
     Active Substance: AMLODIPINE BESYLATE
     Dosage: 5 MG, UNK
     Route: 048
     Dates: start: 20150410
  10. HEPARIN [Concomitant]
     Active Substance: HEPARIN SODIUM
     Dosage: 3000 IU, UNK
     Route: 042
     Dates: start: 19940713
  11. GRANDPAZE S [Concomitant]
     Dosage: 450 MG, UNK
     Route: 048
     Dates: start: 20140813

REACTIONS (1)
  - Gastrointestinal haemorrhage [Recovered/Resolved]

NARRATIVE: CASE EVENT DATE: 20150415
